FAERS Safety Report 13861712 (Version 2)
Quarter: 2017Q3

REPORT INFORMATION
  Report Type: Spontaneous
  Country: US (occurrence: US)
  Receive Date: 20170811
  Receipt Date: 20170906
  Transmission Date: 20171127
  Serious: Yes (Death)
  Sender: FDA-Public Use
  Company Number: US-VIFOR (INTERNATIONAL) INC.-VIT-2016-08614

PATIENT
  Age: 74 Year
  Sex: Male
  Weight: 77.63 kg

DRUGS (9)
  1. VELTASSA [Suspect]
     Active Substance: PATIROMER
     Indication: PRODUCT USED FOR UNKNOWN INDICATION
     Route: 065
  2. ELIQUIS [Concomitant]
     Active Substance: APIXABAN
  3. ARICEPT [Concomitant]
     Active Substance: DONEPEZIL HYDROCHLORIDE
     Dosage: TWICE DAILY
  4. BUPROPION. [Concomitant]
     Active Substance: BUPROPION
  5. GABAPENTIN. [Concomitant]
     Active Substance: GABAPENTIN
  6. HUMALOG [Concomitant]
     Active Substance: INSULIN LISPRO
     Dosage: 9 UNIT 4 TIMES BEFORE MEAL
  7. PARACETAMOL~~HYDROCODONE [Concomitant]
     Dosage: 5/325 ONCE OR TWICE AS AND WHEN NEEDED
  8. CARVEDILOL. [Concomitant]
     Active Substance: CARVEDILOL
  9. FOLIC ACID. [Concomitant]
     Active Substance: FOLIC ACID

REACTIONS (1)
  - Death [Fatal]

NARRATIVE: CASE EVENT DATE: 20160912
